FAERS Safety Report 26123982 (Version 1)
Quarter: 2025Q4

REPORT INFORMATION
  Report Type: Spontaneous
  Country: EU (occurrence: EU)
  Receive Date: 20251205
  Receipt Date: 20251205
  Transmission Date: 20260117
  Serious: Yes (Other)
  Sender: SANDOZ
  Company Number: EU-SANDOZ-SDZ2025DE091106

PATIENT
  Age: 78 Year
  Sex: Male

DRUGS (1)
  1. ROSUVASTATIN CALCIUM [Suspect]
     Active Substance: ROSUVASTATIN CALCIUM
     Indication: Lipid management
     Dosage: 5 MG
     Route: 065
     Dates: start: 202411

REACTIONS (2)
  - Lyme disease [Unknown]
  - Polyneuropathy [Unknown]
